FAERS Safety Report 6227349-4 (Version None)
Quarter: 2009Q2

REPORT INFORMATION
  Report Type: 
  Country: None (occurrence: None)
  Receive Date: 20090612
  Receipt Date: 20090601
  Transmission Date: 20091009
  Serious: Yes (Other)
  Sender: FDA-Public Use
  Company Number: US-JNJFOC-20090302187

PATIENT
  Sex: Female
  Weight: 45.36 kg

DRUGS (8)
  1. INVEGA [Suspect]
     Route: 048
  2. INVEGA [Suspect]
     Dosage: 8 TABLETS TOTALLING 24 MG, OVERDOSE.
     Route: 048
  3. INVEGA [Suspect]
     Indication: SCHIZOAFFECTIVE DISORDER
     Route: 048
  4. RISPERDAL [Suspect]
     Indication: BIPOLAR DISORDER
     Route: 048
  5. DEPAKOTE ER [Suspect]
     Dosage: OVERDOSED, TOOK 7 TO 15 500 MG TABLETS.
  6. DEPAKOTE ER [Suspect]
  7. DEPAKOTE ER [Suspect]
  8. DEPAKOTE ER [Suspect]
     Indication: EPILEPSY

REACTIONS (3)
  - DELUSION [None]
  - OVERDOSE [None]
  - PSYCHIATRIC SYMPTOM [None]
